FAERS Safety Report 23509602 (Version 1)
Quarter: 2024Q1

REPORT INFORMATION
  Report Type: Other
  Country: US (occurrence: US)
  Receive Date: 20240210
  Receipt Date: 20240210
  Transmission Date: 20240409
  Serious: No
  Sender: FDA-Public Use
  Company Number: US-TRAVERE-2024TVT00120

PATIENT
  Sex: Female

DRUGS (2)
  1. FILSPARI [Suspect]
     Active Substance: SPARSENTAN
     Indication: IgA nephropathy
     Route: 048
     Dates: start: 20240120
  2. FILSPARI [Suspect]
     Active Substance: SPARSENTAN
     Route: 048
     Dates: start: 20240205

REACTIONS (1)
  - Hypotension [Unknown]
